FAERS Safety Report 9814493 (Version 1)
Quarter: 2014Q1

REPORT INFORMATION
  Report Type: Spontaneous
  Country: BR (occurrence: BR)
  Receive Date: 20140113
  Receipt Date: 20140113
  Transmission Date: 20141002
  Serious: Yes (Other)
  Sender: FDA-Public Use
  Company Number: BR-PFIZER INC-2014004477

PATIENT
  Age: 68 Year
  Sex: Female
  Weight: 48 kg

DRUGS (1)
  1. FRONTAL [Suspect]
     Indication: ANXIETY
     Dosage: UNSPECIFIED DOSAGE, ONCE DAILY
     Route: 048
     Dates: start: 2012

REACTIONS (4)
  - Ovarian cancer [Unknown]
  - Metastasis [Unknown]
  - Ovarian adhesion [Unknown]
  - Fluid retention [Unknown]
